FAERS Safety Report 5966833-5 (Version None)
Quarter: 2008Q4

REPORT INFORMATION
  Report Type: 
  Country: None (occurrence: None)
  Receive Date: 20081125
  Receipt Date: 20081124
  Transmission Date: 20090506
  Serious: Yes (Other)
  Sender: FDA-Public Use
  Company Number: CH-ROXANE LABORATORIES, INC.-2008-RO-00267RO

PATIENT
  Age: 34 Year
  Sex: Male

DRUGS (4)
  1. AZATHIOPRINE [Suspect]
     Indication: IMMUNOSUPPRESSION
     Dosage: 50MG
  2. CYCLOSPORINE [Suspect]
     Indication: IMMUNOSUPPRESSION
     Dosage: 300MG
  3. CARYOLYSINE [Suspect]
     Indication: MYCOSIS FUNGOIDES
     Route: 061
  4. BETNOVATE [Suspect]
     Indication: MYCOSIS FUNGOIDES
     Route: 061

REACTIONS (2)
  - MYCOSIS FUNGOIDES [None]
  - SKIN HYPERPIGMENTATION [None]
